FAERS Safety Report 21658056 (Version 2)
Quarter: 2023Q1

REPORT INFORMATION
  Report Type: Spontaneous
  Country: US (occurrence: None)
  Receive Date: 20221129
  Receipt Date: 20230109
  Transmission Date: 20230417
  Serious: No
  Sender: FDA-Public Use
  Company Number: 2022A372160

PATIENT
  Age: 23773 Day
  Sex: Male
  Weight: 111.1 kg

DRUGS (1)
  1. SYMBICORT [Suspect]
     Active Substance: BUDESONIDE\FORMOTEROL FUMARATE DIHYDRATE
     Indication: Asthma
     Dosage: 60/4.5 MCG 60 INHALATIONS, TWO PUFF TWO TIMES A DAY
     Route: 055

REACTIONS (9)
  - Dyspnoea [Unknown]
  - Lung disorder [Unknown]
  - Scar [Unknown]
  - Visual impairment [Unknown]
  - Decreased activity [Unknown]
  - Cough [Unknown]
  - Device malfunction [Unknown]
  - Wrong technique in device usage process [Unknown]
  - Incorrect dose administered by device [Unknown]

NARRATIVE: CASE EVENT DATE: 20221109
